FAERS Safety Report 6411313-6 (Version None)
Quarter: 2009Q4

REPORT INFORMATION
  Report Type: 
  Country: None (occurrence: None)
  Receive Date: 20091023
  Receipt Date: 20091013
  Transmission Date: 20100525
  Serious: Yes (Disabling, Other)
  Sender: FDA-Public Use
  Company Number: US-PFIZER INC-2008068079

PATIENT
  Sex: Female

DRUGS (1)
  1. DEPO-PROVERA [Suspect]
     Indication: CONTRACEPTION
     Dosage: UNK
     Route: 030
     Dates: start: 19970101, end: 20060101

REACTIONS (5)
  - BONE DISORDER [None]
  - HIP FRACTURE [None]
  - OSTEOPENIA [None]
  - OSTEOPOROSIS [None]
  - PELVIC FRACTURE [None]
